FAERS Safety Report 12161237 (Version 5)
Quarter: 2016Q4

REPORT INFORMATION
  Report Type: Spontaneous
  Country: JP (occurrence: JP)
  Receive Date: 20160308
  Receipt Date: 20161020
  Transmission Date: 20170207
  Serious: Yes (Other)
  Sender: FDA-Public Use
  Company Number: PHJP2016JP004289

PATIENT
  Age: 20 Year
  Sex: Male

DRUGS (7)
  1. LEVOFLOXACIN. [Suspect]
     Active Substance: LEVOFLOXACIN
     Indication: NASOPHARYNGITIS
     Dosage: 500 MG, QD
     Route: 048
  2. ZITHROMAC [Suspect]
     Active Substance: AZITHROMYCIN DIHYDRATE
     Indication: NASOPHARYNGITIS
     Dosage: 2 G, QD
     Route: 048
  3. MEIACT [Suspect]
     Active Substance: CEFDITOREN PIVOXIL
     Indication: NASOPHARYNGITIS
     Dosage: 300 MG, QD
     Route: 048
  4. AZITHROMYCIN ANHYDROUS. [Suspect]
     Active Substance: AZITHROMYCIN ANHYDROUS
     Indication: NASOPHARYNGITIS
     Dosage: 500 MG, QD
     Route: 048
  5. LOXOPROFEN [Suspect]
     Active Substance: LOXOPROFEN
     Indication: NASOPHARYNGITIS
     Dosage: 180 MG, QD
     Route: 048
  6. VOLTAREN [Suspect]
     Active Substance: DICLOFENAC SODIUM
     Indication: NASOPHARYNGITIS
     Dosage: 75 MG, QD
     Route: 048
  7. CALONAL [Suspect]
     Active Substance: ACETAMINOPHEN
     Indication: NASOPHARYNGITIS
     Dosage: 400 MG, QD
     Route: 048

REACTIONS (3)
  - Drug-induced liver injury [Unknown]
  - Hepatitis infectious mononucleosis [Unknown]
  - Product use issue [Unknown]

NARRATIVE: CASE EVENT DATE: 20160104
